FAERS Safety Report 8297496-4 (Version None)
Quarter: 2012Q1

REPORT INFORMATION
  Report Type: 
  Country: None (occurrence: None)
  Receive Date: 20120322
  Receipt Date: 20120119
  Transmission Date: 20120608
  Serious: Yes (Hospitalization)
  Sender: FDA-Public Use
  Company Number: UTC-014798

PATIENT
  Age: 66 Year
  Sex: Female
  Weight: 754 kg

DRUGS (3)
  1. TYVASO [Suspect]
     Indication: PULMONARY ARTERIAL HYPERTENSION
     Dosage: 192 MCG (48 MCG, 4 IN 1 D), INHALATION
     Route: 055
     Dates: start: 20110222, end: 20111115
  2. REVATIO [Concomitant]
  3. DIURETICS (DIURETICS) [Concomitant]

REACTIONS (2)
  - GENERAL PHYSICAL HEALTH DETERIORATION [None]
  - FLUID RETENTION [None]
